FAERS Safety Report 17042870 (Version 1)
Quarter: 2019Q4

REPORT INFORMATION
  Report Type: Spontaneous
  Country: CN (occurrence: CN)
  Receive Date: 20191118
  Receipt Date: 20191118
  Transmission Date: 20200122
  Serious: Yes (Other)
  Sender: FDA-Public Use
  Company Number: CN-PFIZER INC-2019491687

PATIENT
  Age: 71 Year
  Sex: Female

DRUGS (4)
  1. METHYLPREDNISOLONE SODIUM SUCCINATE. [Suspect]
     Active Substance: METHYLPREDNISOLONE SODIUM SUCCINATE
     Dosage: 0.25 G, 1X/DAY
     Route: 041
     Dates: start: 20191105, end: 20191109
  2. METHYLPREDNISOLONE SODIUM SUCCINATE. [Suspect]
     Active Substance: METHYLPREDNISOLONE SODIUM SUCCINATE
     Dosage: 0.12 G, 1X/DAY
     Route: 041
     Dates: start: 20191109, end: 20191111
  3. METHYLPREDNISOLONE SODIUM SUCCINATE. [Suspect]
     Active Substance: METHYLPREDNISOLONE SODIUM SUCCINATE
     Dosage: 0.5 G, 1X/DAY
     Route: 041
     Dates: start: 20191102, end: 20191105
  4. METHYLPREDNISOLONE SODIUM SUCCINATE. [Suspect]
     Active Substance: METHYLPREDNISOLONE SODIUM SUCCINATE
     Indication: MYASTHENIA GRAVIS
     Dosage: 1 G, 1X/DAY
     Route: 041
     Dates: start: 20191031, end: 20191102

REACTIONS (5)
  - Off label use [Recovered/Resolved]
  - Abdominal tenderness [Recovering/Resolving]
  - Epigastric discomfort [Recovering/Resolving]
  - Product use in unapproved indication [Recovered/Resolved]
  - Occult blood positive [Recovering/Resolving]

NARRATIVE: CASE EVENT DATE: 20191031
